FAERS Safety Report 24637358 (Version 2)
Quarter: 2024Q4

REPORT INFORMATION
  Report Type: Spontaneous
  Country: US (occurrence: US)
  Receive Date: 20241119
  Receipt Date: 20241213
  Transmission Date: 20250114
  Serious: Yes (Other)
  Sender: GLENMARK
  Company Number: US-GLENMARK PHARMACEUTICALS-2024GMK095418

PATIENT

DRUGS (2)
  1. CLINDAMYCIN HYDROCHLORIDE [Suspect]
     Active Substance: CLINDAMYCIN HYDROCHLORIDE
     Indication: Wisdom teeth removal
     Dosage: UNK
     Route: 048
  2. CLINDAMYCIN HYDROCHLORIDE [Suspect]
     Active Substance: CLINDAMYCIN HYDROCHLORIDE
     Indication: Postoperative care

REACTIONS (4)
  - Foreign body in throat [Unknown]
  - Product use in unapproved indication [Unknown]
  - Product use complaint [Unknown]
  - Product quality issue [Unknown]
